FAERS Safety Report 8794393 (Version 1)
Quarter: 2012Q4

REPORT INFORMATION
  Report Type: 
  Country: TR (occurrence: TR)
  Receive Date: 20120917
  Receipt Date: 20120917
  Transmission Date: 20130627
  Serious: Yes (Hospitalization)
  Sender: FDA-Public Use
  Company Number: TR-MYLANLABS-2012S1018465

PATIENT
  Age: 34 Year
  Sex: Female

DRUGS (2)
  1. SUMATRIPTAN [Suspect]
     Indication: MIGRAINE
     Route: 045
  2. METOCLOPRAMIDE [Concomitant]
     Indication: MIGRAINE
     Route: 030

REACTIONS (4)
  - Brain stem infarction [Recovering/Resolving]
  - Basilar artery occlusion [Recovering/Resolving]
  - Condition aggravated [Recovering/Resolving]
  - Loss of consciousness [Recovered/Resolved]
